FAERS Safety Report 4734380-4 (Version None)
Quarter: 2005Q3

REPORT INFORMATION
  Report Type: 
  Country: None (occurrence: None)
  Receive Date: 20050802
  Receipt Date: 20050718
  Transmission Date: 20060218
  Serious: Yes (Hospitalization)
  Sender: FDA-Public Use
  Company Number: 2005BI004511

PATIENT
  Age: 22 Year
  Sex: Male
  Weight: 120.2032 kg

DRUGS (1)
  1. AVONEX [Suspect]
     Indication: MULTIPLE SCLEROSIS
     Dosage: QW; IM
     Route: 030
     Dates: start: 20050101, end: 20050201

REACTIONS (2)
  - INFLUENZA LIKE ILLNESS [None]
  - PARAPLEGIA [None]
